FAERS Safety Report 17483197 (Version 1)
Quarter: 2020Q1

REPORT INFORMATION
  Report Type: Spontaneous
  Country: US (occurrence: US)
  Receive Date: 20200228
  Receipt Date: 20200228
  Transmission Date: 20200409
  Serious: Yes (Life-Threatening, Hospitalization, Other)
  Sender: FDA-Public Use
  Company Number: None

PATIENT
  Age: 48 Year
  Sex: Female

DRUGS (2)
  1. ENTOCORT EC [Suspect]
     Active Substance: BUDESONIDE
     Indication: AUTOIMMUNE HEPATITIS
     Route: 048
  2. SOLUMEDROL (2 DAYS PRIOR TO PJP DIAGNOSIS) [Concomitant]

REACTIONS (2)
  - Therapeutic product effect prolonged [None]
  - Pneumocystis jirovecii pneumonia [None]
